FAERS Safety Report 10867643 (Version 2)
Quarter: 2015Q3

REPORT INFORMATION
  Report Type: Spontaneous
  Country: US (occurrence: US)
  Receive Date: 20150225
  Receipt Date: 20150704
  Transmission Date: 20151125
  Serious: Yes (Congenital Anomaly, Other)
  Sender: FDA-Public Use
  Company Number: US-APOTEX-2015AP006826

PATIENT
  Sex: Male
  Weight: 2.72 kg

DRUGS (5)
  1. PAXIL [Suspect]
     Active Substance: PAROXETINE HYDROCHLORIDE
     Dosage: 20 MG, DAILY
     Route: 064
     Dates: start: 20010309, end: 2004
  2. VICODIN [Suspect]
     Active Substance: ACETAMINOPHEN\HYDROCODONE BITARTRATE
     Indication: PRODUCT USED FOR UNKNOWN INDICATION
     Dosage: UNK
     Route: 064
     Dates: end: 2004
  3. SKELAXIN [Suspect]
     Active Substance: METAXALONE
     Indication: PRODUCT USED FOR UNKNOWN INDICATION
     Route: 065
  4. PAXIL [Suspect]
     Active Substance: PAROXETINE HYDROCHLORIDE
     Indication: PRODUCT USED FOR UNKNOWN INDICATION
     Dosage: 40 MG, QD
     Route: 064
     Dates: end: 2004
  5. CELEBREX [Suspect]
     Active Substance: CELECOXIB
     Indication: PRODUCT USED FOR UNKNOWN INDICATION
     Dosage: 200 MG, BID
     Route: 065

REACTIONS (10)
  - Hypertrophic cardiomyopathy [Unknown]
  - Hyperinsulinaemia [Unknown]
  - Premature baby [Unknown]
  - Pulmonary artery stenosis congenital [Unknown]
  - Hypertelorism of orbit [Unknown]
  - Foetal exposure during pregnancy [Unknown]
  - Ventricular hypertrophy [Unknown]
  - Dysmorphism [Unknown]
  - Heart disease congenital [Unknown]
  - Cardiac murmur [Unknown]
